APPROVED DRUG PRODUCT: DICLOFENAC SODIUM AND MISOPROSTOL
Active Ingredient: DICLOFENAC SODIUM; MISOPROSTOL
Strength: 50MG;0.2MG
Dosage Form/Route: TABLET, DELAYED RELEASE;ORAL
Application: A206771 | Product #001
Applicant: ZYDUS PHARMACEUTICALS USA INC
Approved: Jun 12, 2023 | RLD: No | RS: No | Type: DISCN